FAERS Safety Report 15918583 (Version 1)
Quarter: 2019Q1

REPORT INFORMATION
  Report Type: Spontaneous
  Country: US (occurrence: ZA)
  Receive Date: 20190205
  Receipt Date: 20190205
  Transmission Date: 20190417
  Serious: Yes (Other)
  Sender: FDA-Public Use
  Company Number: ZA-STI PHARMA LLC-2062161

PATIENT
  Age: 21 Year
  Sex: Male

DRUGS (11)
  1. ETHIONAMIDE [Suspect]
     Active Substance: ETHIONAMIDE
     Route: 048
     Dates: start: 20181221
  2. OMEPRAZOLE. [Concomitant]
     Active Substance: OMEPRAZOLE
  3. BEDAQUILINE [Suspect]
     Active Substance: BEDAQUILINE
     Route: 048
     Dates: start: 20181020
  4. PYRAZINAMIDE. [Suspect]
     Active Substance: PYRAZINAMIDE
     Route: 048
     Dates: start: 20181020
  5. DELAMANID [Suspect]
     Active Substance: DELAMANID
     Route: 048
     Dates: start: 20181114
  6. FERROUS SULFATE. [Concomitant]
     Active Substance: FERROUS SULFATE
  7. FOLIC ACID. [Concomitant]
     Active Substance: FOLIC ACID
  8. ETHAMBUTOL HYDROCHLORIDE. [Suspect]
     Active Substance: ETHAMBUTOL HYDROCHLORIDE
     Route: 048
     Dates: start: 20181020
  9. LINEZOLID. [Suspect]
     Active Substance: LINEZOLID
     Route: 048
     Dates: start: 20181221
  10. AMINOSALICYLIC ACID [Suspect]
     Active Substance: AMINOSALICYLIC ACID
     Route: 048
     Dates: start: 20181221
  11. TERIZIDONE [Suspect]
     Active Substance: TERIZIDONE
     Route: 048
     Dates: start: 20181221, end: 20181222

REACTIONS (1)
  - Confusional state [Recovering/Resolving]

NARRATIVE: CASE EVENT DATE: 20181222
